FAERS Safety Report 13079471 (Version 1)
Quarter: 2017Q1

REPORT INFORMATION
  Report Type: Spontaneous
  Country: US (occurrence: US)
  Receive Date: 20170103
  Receipt Date: 20170103
  Transmission Date: 20170428
  Serious: Yes (Death, Hospitalization)
  Sender: FDA-Public Use
  Company Number: US-ASTRAZENECA-2016SF37632

PATIENT
  Age: 57 Year
  Sex: Female

DRUGS (9)
  1. OMEPRAZOLE. [Suspect]
     Active Substance: OMEPRAZOLE
     Route: 048
  2. CLORAZEPATE [Suspect]
     Active Substance: CLORAZEPATE DIPOTASSIUM
     Route: 048
  3. ALCOHOL, UNKNOWN [Suspect]
     Active Substance: ALCOHOL
     Route: 048
  4. NAPROXEN. [Suspect]
     Active Substance: NAPROXEN
     Route: 048
  5. CYANOCOBALAMIN. [Suspect]
     Active Substance: CYANOCOBALAMIN
     Route: 048
  6. ALCOHOL. [Suspect]
     Active Substance: ALCOHOL
     Route: 048
  7. CITALOPRAM [Suspect]
     Active Substance: CITALOPRAM HYDROBROMIDE
     Route: 048
  8. CIMETIDINE [Suspect]
     Active Substance: CIMETIDINE
     Route: 048
  9. BUPROPION. [Suspect]
     Active Substance: BUPROPION
     Route: 048

REACTIONS (2)
  - Toxicity to various agents [Fatal]
  - Completed suicide [Fatal]
